FAERS Safety Report 13898199 (Version 1)
Quarter: 2017Q3

REPORT INFORMATION
  Report Type: Spontaneous
  Country: US (occurrence: US)
  Receive Date: 20170823
  Receipt Date: 20170823
  Transmission Date: 20171127
  Serious: Yes (Hospitalization)
  Sender: FDA-Public Use
  Company Number: US-TEVA-800042USA

PATIENT
  Age: 56 Year
  Sex: Male

DRUGS (6)
  1. FENTORA [Suspect]
     Active Substance: FENTANYL CITRATE
     Indication: BACK INJURY
     Route: 002
     Dates: start: 201612
  2. OXYCONTIN [Concomitant]
     Active Substance: OXYCODONE HYDROCHLORIDE
     Indication: BACK PAIN
  3. GLUCOVANCE [Concomitant]
     Active Substance: GLYBURIDE\METFORMIN HYDROCHLORIDE
     Indication: DIABETES MELLITUS
     Dosage: 2.5 MG/500 MG
  4. OXYCONTIN [Concomitant]
     Active Substance: OXYCODONE HYDROCHLORIDE
  5. FLEXERIL [Concomitant]
     Active Substance: CYCLOBENZAPRINE HYDROCHLORIDE
  6. LYRICA [Concomitant]
     Active Substance: PREGABALIN
     Indication: BACK PAIN

REACTIONS (4)
  - Back injury [Unknown]
  - Pain [Not Recovered/Not Resolved]
  - Therapy cessation [Unknown]
  - Back pain [Unknown]

NARRATIVE: CASE EVENT DATE: 20170821
